FAERS Safety Report 17709509 (Version 1)
Quarter: 2020Q2

REPORT INFORMATION
  Report Type: Spontaneous
  Country: US (occurrence: US)
  Receive Date: 20200427
  Receipt Date: 20200427
  Transmission Date: 20200714
  Serious: Yes (Hospitalization, Other)
  Sender: FDA-Public Use
  Company Number: US-AUROBINDO-AUR-APL-2020-021006

PATIENT
  Age: 73 Year
  Sex: Male

DRUGS (8)
  1. INDOMETHACIN. [Suspect]
     Active Substance: INDOMETHACIN
     Indication: ARTHRALGIA
     Dosage: UNK
     Route: 065
  2. NOREPINEPHRINE. [Concomitant]
     Active Substance: NOREPINEPHRINE
     Indication: BLOOD PRESSURE MEASUREMENT
     Dosage: UNK
     Route: 065
  3. TRANEXAMIC ACID. [Concomitant]
     Active Substance: TRANEXAMIC ACID
     Indication: THROMBOSIS
     Dosage: UNK
     Route: 065
  4. PIROXICAM. [Suspect]
     Active Substance: PIROXICAM
     Indication: ARTHRALGIA
     Dosage: UNK
     Route: 065
  5. PANTOPRAZOLE [Concomitant]
     Active Substance: PANTOPRAZOLE
     Indication: PRODUCT USED FOR UNKNOWN INDICATION
     Dosage: UNK
     Route: 065
  6. OCTREOTIDE. [Concomitant]
     Active Substance: OCTREOTIDE
     Indication: PRODUCT USED FOR UNKNOWN INDICATION
     Dosage: UNK
     Route: 065
  7. DICLOFENAC [Suspect]
     Active Substance: DICLOFENAC
     Indication: ARTHRALGIA
     Dosage: UNK
     Route: 065
  8. CEFTRIAXONE. [Concomitant]
     Active Substance: CEFTRIAXONE
     Indication: INFECTION
     Dosage: UNK
     Route: 065

REACTIONS (13)
  - Duodenal ulcer [Unknown]
  - Duodenostomy [Unknown]
  - Jejunostomy [Unknown]
  - Melaena [Unknown]
  - Haematochezia [Unknown]
  - Syncope [Unknown]
  - Haematemesis [Unknown]
  - Abdominal compartment syndrome [Unknown]
  - Cold sweat [Unknown]
  - Biliary catheter insertion [Unknown]
  - Duodenal perforation [Unknown]
  - Cholecystectomy [Unknown]
  - Conjunctival pallor [Unknown]
